FAERS Safety Report 19263994 (Version 1)
Quarter: 2021Q2

REPORT INFORMATION
  Report Type: Spontaneous
  Country: US (occurrence: US)
  Receive Date: 20210514
  Receipt Date: 20210514
  Transmission Date: 20210717
  Serious: Yes (Hospitalization)
  Sender: FDA-Public Use
  Company Number: None

PATIENT
  Age: 70 Year
  Sex: Male

DRUGS (20)
  1. VITAMIN D3 [Concomitant]
     Active Substance: CHOLECALCIFEROL
  2. SPIRIVA [Concomitant]
     Active Substance: TIOTROPIUM BROMIDE MONOHYDRATE
  3. ALLOPURINOL. [Concomitant]
     Active Substance: ALLOPURINOL
  4. ATOVAQUONE. [Concomitant]
     Active Substance: ATOVAQUONE
  5. ALBUTEROL HFA [Concomitant]
     Active Substance: ALBUTEROL SULFATE
  6. GRAZODONE [Concomitant]
  7. DULOXETINE. [Concomitant]
     Active Substance: DULOXETINE
  8. SENNA [Concomitant]
     Active Substance: SENNA LEAF\SENNOSIDES\SENNOSIDES A AND B
  9. ATORVASTATIN [Concomitant]
     Active Substance: ATORVASTATIN
  10. TORSEMIDE. [Concomitant]
     Active Substance: TORSEMIDE
  11. PREDNISONE. [Concomitant]
     Active Substance: PREDNISONE
  12. SILDENAFIL. [Concomitant]
     Active Substance: SILDENAFIL
  13. NORCO [Concomitant]
     Active Substance: ACETAMINOPHEN\HYDROCODONE BITARTRATE
  14. ASPIRIN. [Concomitant]
     Active Substance: ASPIRIN
  15. MELATONIN [Concomitant]
     Active Substance: MELATONIN
  16. AMIODARONE [Concomitant]
     Active Substance: AMIODARONE
  17. OMEPRAZOLE. [Concomitant]
     Active Substance: OMEPRAZOLE
  18. OPSUMIT [Suspect]
     Active Substance: MACITENTAN
     Indication: PULMONARY HYPERTENSION
     Route: 048
     Dates: start: 20160812
  19. FLONASE [Concomitant]
     Active Substance: FLUTICASONE PROPIONATE
  20. COLACE [Concomitant]
     Active Substance: DOCUSATE SODIUM

REACTIONS (6)
  - Fall [None]
  - Arthralgia [None]
  - Heart rate decreased [None]
  - Presyncope [None]
  - Diplopia [None]
  - Dizziness [None]

NARRATIVE: CASE EVENT DATE: 20210423
